FAERS Safety Report 5036770-1 (Version None)
Quarter: 2006Q2

REPORT INFORMATION
  Report Type: 
  Country: None (occurrence: None)
  Receive Date: 20060601
  Receipt Date: 20050523
  Transmission Date: 20061013
  Serious: Yes (Other)
  Sender: FDA-Public Use
  Company Number: 2005US000553

PATIENT
  Age: 13 Year
  Sex: Female

DRUGS (5)
  1. PROGRAF [Suspect]
     Indication: PROPHYLAXIS AGAINST TRANSPLANT REJECTION
     Dosage: 2 MG, BID, ORAL
     Route: 048
     Dates: start: 19980217, end: 20010912
  2. IMURAN [Suspect]
     Indication: PROPHYLAXIS AGAINST TRANSPLANT REJECTION
     Dosage: 75.00 G, UID/QD, ORAL
     Route: 048
     Dates: start: 20010912, end: 20011126
  3. SINGULAIR [Concomitant]
  4. FLOVENT [Concomitant]
  5. PAXIL [Concomitant]

REACTIONS (1)
  - LYMPHOPROLIFERATIVE DISORDER [None]
